FAERS Safety Report 5139941-9 (Version None)
Quarter: 2006Q4

REPORT INFORMATION
  Report Type: 
  Country: None (occurrence: None)
  Receive Date: 20061031
  Receipt Date: 20061018
  Transmission Date: 20070319
  Serious: Yes (Other)
  Sender: FDA-Public Use
  Company Number: PHEH2006US13034

PATIENT
  Age: 62 Year
  Sex: Male

DRUGS (2)
  1. LAMISIL [Suspect]
     Indication: NAIL TINEA
     Dosage: 250 MG, QD
     Route: 048
     Dates: start: 20060901, end: 20061004
  2. TEMAZEPAM [Concomitant]
     Indication: INSOMNIA

REACTIONS (2)
  - AMNESIA [None]
  - HEADACHE [None]
